FAERS Safety Report 8950306 (Version 1)
Quarter: 2012Q4

REPORT INFORMATION
  Report Type: Spontaneous
  Country: US (occurrence: None)
  Receive Date: 20121130
  Receipt Date: 20121130
  Transmission Date: 20130627
  Serious: Yes (Hospitalization)
  Sender: FDA-Public Use
  Company Number: None

PATIENT
  Age: 87 Year
  Sex: Male
  Weight: 87.09 kg

DRUGS (13)
  1. XARELTO [Suspect]
     Indication: ATRIAL FIBRILLATION
     Route: 048
     Dates: start: 20121108, end: 20121125
  2. OXYBUTININ [Concomitant]
  3. TRAZADONE [Concomitant]
  4. RANITIDINE [Concomitant]
  5. ULTRAM [Concomitant]
  6. ASPIRIN [Concomitant]
  7. VICODIN [Concomitant]
  8. FLORASTOR [Concomitant]
  9. METAMUCIL [Concomitant]
  10. NICODERM CQ [Concomitant]
  11. PROZOSIN [Concomitant]
  12. RESTORIL [Concomitant]
  13. DOCUSATO [Concomitant]

REACTIONS (1)
  - Gastrointestinal haemorrhage [None]
